FAERS Safety Report 7169722-6 (Version None)
Quarter: 2010Q4

REPORT INFORMATION
  Report Type: 
  Country: None (occurrence: None)
  Receive Date: 20101206
  Receipt Date: 20101122
  Transmission Date: 20110411
  Serious: Yes (Life-Threatening, Hospitalization)
  Sender: FDA-Public Use
  Company Number: 1000017474

PATIENT
  Age: 30 Year
  Sex: Female

DRUGS (3)
  1. DILTIAZEM HCL [Suspect]
  2. METOPROLOL SUCCINATE [Suspect]
  3. AMIODARONE (AMIODARONE) [Suspect]

REACTIONS (3)
  - ABDOMINAL PAIN [None]
  - CARDIOGENIC SHOCK [None]
  - MULTIPLE DRUG OVERDOSE [None]
